FAERS Safety Report 19256321 (Version 2)
Quarter: 2021Q3

REPORT INFORMATION
  Report Type: Spontaneous
  Country: US (occurrence: US)
  Receive Date: 20210513
  Receipt Date: 20210721
  Transmission Date: 20211014
  Serious: Yes (Life-Threatening, Hospitalization)
  Sender: FDA-Public Use
  Company Number: US-TEVA-2021-US-1910082

PATIENT
  Age: 37 Year
  Sex: Female

DRUGS (2)
  1. HEPARIN [Suspect]
     Active Substance: HEPARIN SODIUM
     Indication: ANTICOAGULANT THERAPY
     Route: 050
  2. ARGATROBAN. [Suspect]
     Active Substance: ARGATROBAN
     Indication: CEREBELLAR STROKE
     Route: 065

REACTIONS (3)
  - Cerebellar stroke [Unknown]
  - Heparin-induced thrombocytopenia [Recovered/Resolved]
  - Drug ineffective [Unknown]
